FAERS Safety Report 7652417-X (Version None)
Quarter: 2011Q3

REPORT INFORMATION
  Report Type: 
  Country: None (occurrence: None)
  Receive Date: 20110803
  Receipt Date: 20110728
  Transmission Date: 20111222
  Serious: Yes (Hospitalization)
  Sender: FDA-Public Use
  Company Number: US-ABBOTT-11P-163-0842794-00

PATIENT
  Sex: Female
  Weight: 91.708 kg

DRUGS (1)
  1. HUMIRA [Suspect]
     Indication: PSORIASIS
     Dates: start: 20080101

REACTIONS (4)
  - INCREASED TENDENCY TO BRUISE [None]
  - SKIN ULCER [None]
  - VISUAL ACUITY REDUCED [None]
  - EYE HAEMORRHAGE [None]
